FAERS Safety Report 7776518-0 (Version None)
Quarter: 2011Q3

REPORT INFORMATION
  Report Type: 
  Country: None (occurrence: None)
  Receive Date: 20110922
  Receipt Date: 20110914
  Transmission Date: 20111222
  Serious: Yes (Other)
  Sender: FDA-Public Use
  Company Number: 2011SP016575

PATIENT
  Age: 37 Year
  Sex: Female
  Weight: 68.0396 kg

DRUGS (1)
  1. NUVARING [Suspect]
     Indication: CONTRACEPTION
     Dates: start: 20030301, end: 20090522

REACTIONS (26)
  - GASTROOESOPHAGEAL REFLUX DISEASE [None]
  - DYSFUNCTIONAL UTERINE BLEEDING [None]
  - NASOPHARYNGITIS [None]
  - VISUAL IMPAIRMENT [None]
  - LIBIDO DECREASED [None]
  - BRONCHOPNEUMONIA [None]
  - ARTHROPOD BITE [None]
  - PULMONARY EMBOLISM [None]
  - VIRAL UPPER RESPIRATORY TRACT INFECTION [None]
  - UPPER-AIRWAY COUGH SYNDROME [None]
  - PERIARTHRITIS [None]
  - COUGH [None]
  - ASTHMA [None]
  - PERNICIOUS ANAEMIA [None]
  - VARICOSE VEIN [None]
  - MULTIPLE ALLERGIES [None]
  - RHINORRHOEA [None]
  - TREATMENT NONCOMPLIANCE [None]
  - ALOPECIA [None]
  - VULVOVAGINAL DRYNESS [None]
  - CARDIAC MURMUR [None]
  - ARTHRALGIA [None]
  - FATIGUE [None]
  - DEEP VEIN THROMBOSIS [None]
  - RASH [None]
  - ACUTE SINUSITIS [None]
